FAERS Safety Report 6312460-X (Version None)
Quarter: 2009Q3

REPORT INFORMATION
  Report Type: 
  Country: None (occurrence: None)
  Receive Date: 20090813
  Receipt Date: 20090803
  Transmission Date: 20100115
  Serious: Yes (Other)
  Sender: FDA-Public Use
  Company Number: 2009AL005136

PATIENT
  Sex: 0

DRUGS (1)
  1. PHENOBARBITAL TAB [Suspect]
     Dosage: 60 MG

REACTIONS (2)
  - CONVULSION [None]
  - DRUG DISPENSING ERROR [None]
